FAERS Safety Report 9517618 (Version 1)
Quarter: 2013Q3

REPORT INFORMATION
  Report Type: Spontaneous
  Country: GE (occurrence: GE)
  Receive Date: 20130912
  Receipt Date: 20130912
  Transmission Date: 20140515
  Serious: Yes (Hospitalization)
  Sender: FDA-Public Use
  Company Number: GE-ROCHE-1272055

PATIENT
  Age: 62 Year
  Sex: Female

DRUGS (1)
  1. XENICAL [Suspect]
     Indication: OBESITY
     Route: 048
     Dates: start: 20130204, end: 20130530

REACTIONS (2)
  - Pancreatitis acute [Unknown]
  - Cholecystitis acute [Unknown]
